FAERS Safety Report 20061875 (Version 2)
Quarter: 2022Q3

REPORT INFORMATION
  Report Type: Other
  Country: JP (occurrence: JP)
  Receive Date: 20211112
  Receipt Date: 20220920
  Transmission Date: 20221027
  Serious: Yes (Other)
  Sender: FDA-Public Use
  Company Number: JP-CHUGAI-2021025802

PATIENT
  Age: 67 Year
  Sex: Male
  Weight: 59 kg

DRUGS (5)
  1. ENTRECTINIB [Suspect]
     Active Substance: ENTRECTINIB
     Indication: Non-small cell lung cancer
     Dosage: 600 MILLIGRAM, QD
     Route: 048
     Dates: start: 20201117, end: 20210309
  2. ENTRECTINIB [Suspect]
     Active Substance: ENTRECTINIB
     Route: 048
     Dates: start: 20210417
  3. ENTRECTINIB [Suspect]
     Active Substance: ENTRECTINIB
     Route: 048
     Dates: start: 20210607
  4. ENTRECTINIB [Suspect]
     Active Substance: ENTRECTINIB
     Route: 048
     Dates: start: 20210619
  5. ENTRECTINIB [Suspect]
     Active Substance: ENTRECTINIB
     Dosage: 200 MILLIGRAM, QD
     Route: 048
     Dates: start: 20210628, end: 20220524

REACTIONS (2)
  - Renal disorder [Recovering/Resolving]
  - Cardiac failure [Recovering/Resolving]

NARRATIVE: CASE EVENT DATE: 20210309
